FAERS Safety Report 11099013 (Version 1)
Quarter: 2015Q2

REPORT INFORMATION
  Report Type: Spontaneous
  Country: US (occurrence: US)
  Receive Date: 20150508
  Receipt Date: 20150508
  Transmission Date: 20150821
  Serious: No
  Sender: FDA-Public Use
  Company Number: US-ASTRAZENECA-2015SE41167

PATIENT
  Age: 623 Month
  Sex: Male
  Weight: 117.9 kg

DRUGS (8)
  1. PULMICORT FLEXHALER [Suspect]
     Active Substance: BUDESONIDE
     Indication: DIZZINESS
     Dosage: 1 PUFF DAILY
     Route: 055
     Dates: start: 201504
  2. PROAIR HFA [Concomitant]
     Active Substance: ALBUTEROL SULFATE
     Indication: DYSPNOEA
     Route: 055
     Dates: start: 201504
  3. PULMICORT FLEXHALER [Suspect]
     Active Substance: BUDESONIDE
     Indication: DYSPNOEA
     Dosage: 1 PUFF DAILY
     Route: 055
     Dates: start: 201504
  4. PROAIR HFA [Concomitant]
     Active Substance: ALBUTEROL SULFATE
     Indication: HYPOAESTHESIA
     Route: 055
     Dates: start: 201504
  5. PROAIR HFA [Concomitant]
     Active Substance: ALBUTEROL SULFATE
     Indication: DIZZINESS
     Route: 055
     Dates: start: 201504
  6. PROAIR HFA [Concomitant]
     Active Substance: ALBUTEROL SULFATE
     Indication: DIZZINESS
     Route: 055
     Dates: start: 201504
  7. PULMICORT FLEXHALER [Suspect]
     Active Substance: BUDESONIDE
     Indication: HYPOAESTHESIA
     Dosage: 1 PUFF DAILY
     Route: 055
     Dates: start: 201504
  8. PULMICORT FLEXHALER [Suspect]
     Active Substance: BUDESONIDE
     Indication: DIZZINESS
     Dosage: 1 PUFF DAILY
     Route: 055
     Dates: start: 201504

REACTIONS (5)
  - Tongue dry [Unknown]
  - Drug dose omission [Unknown]
  - Intentional product misuse [Unknown]
  - Sensory disturbance [Unknown]
  - Off label use [Unknown]

NARRATIVE: CASE EVENT DATE: 201504
